FAERS Safety Report 9757329 (Version 3)
Quarter: 2014Q2

REPORT INFORMATION
  Report Type: Report from Study
  Country: GB (occurrence: GB)
  Receive Date: 20131214
  Receipt Date: 20140516
  Transmission Date: 20141212
  Serious: Yes (Hospitalization)
  Sender: FDA-Public Use
  Company Number: GB-BRISTOL-MYERS SQUIBB COMPANY-19861863

PATIENT
  Age: 59 Year
  Sex: Male

DRUGS (11)
  1. BLINDED: IPILIMUMAB [Suspect]
     Indication: SMALL CELL LUNG CANCER
     Dosage: 11SEP-30OCT13-149MG?COURSE 2
     Route: 042
     Dates: start: 20130911, end: 20131120
  2. CARBOPLATIN [Suspect]
     Indication: SMALL CELL LUNG CANCER
     Dosage: 16JUL-7OCT13?16JUL-9OCT13-590MG-COURSE 4
     Route: 042
     Dates: start: 20130716, end: 20131007
  3. ETOPOSIDE [Suspect]
     Indication: SMALL CELL LUNG CANCER
     Dosage: 16JUL-9OCT13-156 MG ALSO
     Route: 042
     Dates: start: 20130716, end: 20131009
  4. BLINDED: PLACEBO [Suspect]
     Indication: SMALL CELL LUNG CANCER
     Route: 042
     Dates: start: 20130911, end: 20131120
  5. PARACETAMOL [Concomitant]
     Dates: start: 201307
  6. DALTEPARIN [Concomitant]
     Dates: start: 20131111
  7. LANSOPRAZOLE [Concomitant]
     Dates: start: 201110
  8. SIMVASTATIN [Concomitant]
     Dates: start: 201110
  9. CLOPIDOGREL BISULFATE [Concomitant]
     Dates: start: 201110
  10. BISOPROLOL [Concomitant]
     Dates: start: 20130822
  11. CODEINE PHOSPHATE [Concomitant]
     Dates: start: 201306

REACTIONS (2)
  - Confusional state [Recovered/Resolved]
  - Headache [Recovered/Resolved]
